FAERS Safety Report 6919840-X (Version None)
Quarter: 2010Q3

REPORT INFORMATION
  Report Type: 
  Country: None (occurrence: None)
  Receive Date: 20100811
  Receipt Date: 20100806
  Transmission Date: 20110219
  Serious: Yes (Hospitalization, Other)
  Sender: FDA-Public Use
  Company Number: FR-WYE-G06514310

PATIENT
  Sex: Male

DRUGS (14)
  1. PIPERACILLIN AND TAZOBACTAM [Suspect]
     Indication: PNEUMONIA STAPHYLOCOCCAL
     Dosage: UNKNOWN
     Route: 042
     Dates: start: 20100609
  2. NEXIUM [Concomitant]
     Route: 048
  3. ATARAX [Concomitant]
     Route: 048
  4. LEXOMIL [Concomitant]
     Dosage: UNKNOWN
     Route: 048
  5. CREON [Concomitant]
     Indication: PANCREATIC INSUFFICIENCY
     Dosage: UNKNOWN
     Route: 048
  6. TIGECYCLINE [Suspect]
     Dosage: UNKNOWN
     Route: 042
     Dates: start: 20100611
  7. BUMEX [Concomitant]
     Indication: HYPERTENSION
     Route: 048
  8. AMIKIN [Concomitant]
     Indication: PNEUMONIA STAPHYLOCOCCAL
     Dosage: UNKNOWN
     Route: 042
     Dates: start: 20100609
  9. GENTAMICIN [Concomitant]
     Dosage: 320 MG; FREQUENCY UNSPECIFIED
     Route: 042
     Dates: start: 20100604, end: 20100611
  10. FLUIMUCIL [Concomitant]
     Indication: INCREASED BRONCHIAL SECRETION
     Dosage: UNKNOWN
     Route: 048
     Dates: start: 20100602
  11. XATRAL [Concomitant]
     Indication: PROSTATIC ADENOMA
     Dosage: UNKNOWN
     Route: 048
  12. INSULIN [Concomitant]
     Indication: DIABETES MELLITUS
     Dosage: UNKNOWN
     Route: 058
  13. VANCOMYCIN [Suspect]
     Dosage: 1 G; FREQUENCY UNSPECIFIED
     Route: 042
     Dates: start: 20100604, end: 20100611
  14. PROZAC [Concomitant]
     Indication: DEPRESSION
     Dosage: UNKNOWN
     Route: 048

REACTIONS (3)
  - AGRANULOCYTOSIS [None]
  - ANAEMIA [None]
  - NEUTROPENIA [None]
